FAERS Safety Report 5721030-3 (Version None)
Quarter: 2008Q2

REPORT INFORMATION
  Report Type: 
  Country: None (occurrence: None)
  Receive Date: 20080425
  Receipt Date: 20080417
  Transmission Date: 20081010
  Serious: Yes (Other)
  Sender: FDA-Public Use
  Company Number: CHPA2008US06864

PATIENT
  Age: 75 Year
  Sex: Female

DRUGS (10)
  1. MAALOX ANTACID/ANTIGAS MAX QDTABS WILDB (NCH) (CALCIUM CARBONATE, SIME [Suspect]
     Indication: GASTROOESOPHAGEAL REFLUX DISEASE
     Dosage: 1 DF, QHS, ORAL
     Route: 048
     Dates: start: 20080401, end: 20080417
  2. THYROID TAB [Concomitant]
  3. HYOSCYAMINE (HYOSCYAMINE) [Concomitant]
  4. DIAZEPAM [Concomitant]
  5. LISINOPRIL [Concomitant]
  6. VITAMIN A [Concomitant]
  7. VITAMIN D [Concomitant]
  8. COD LIVER OIL FORTIFIED TAB [Concomitant]
  9. LYSINE (LYSINE) [Concomitant]
  10. ACIDOPHILUS (LACTOBACILLUS ACIDOPHILUS) [Concomitant]

REACTIONS (1)
  - COELIAC DISEASE [None]
